FAERS Safety Report 7406858-6 (Version None)
Quarter: 2011Q2

REPORT INFORMATION
  Report Type: 
  Country: None (occurrence: None)
  Receive Date: 20110404
  Receipt Date: 20110330
  Transmission Date: 20111010
  Serious: Yes (Other)
  Sender: FDA-Public Use
  Company Number: 2011SP011443

PATIENT
  Age: 82 Year
  Sex: Male

DRUGS (5)
  1. PLAQUENIL [Concomitant]
  2. PREDNISONE [Concomitant]
  3. NEBIVOLOL HCL [Concomitant]
  4. CORICIDIN HBP COUGH AND COLD [Suspect]
     Indication: COUGH
     Dosage: ONCE;PO
     Route: 048
  5. AMLODIPINE [Concomitant]

REACTIONS (1)
  - BLOOD PRESSURE INCREASED [None]
